FAERS Safety Report 25245351 (Version 1)
Quarter: 2025Q2

REPORT INFORMATION
  Report Type: Spontaneous
  Country: CH (occurrence: CH)
  Receive Date: 20250428
  Receipt Date: 20250428
  Transmission Date: 20250716
  Serious: Yes (Hospitalization, Other)
  Sender: AMGEN
  Company Number: CH-AMGEN-CHESP2025079670

PATIENT
  Age: 71 Year
  Sex: Female

DRUGS (2)
  1. PROLIA [Suspect]
     Active Substance: DENOSUMAB
     Indication: Osteoporosis
     Route: 065
  2. VITAMIN D [Concomitant]
     Active Substance: VITAMIN D NOS

REACTIONS (10)
  - Cardiac failure [Unknown]
  - Pulmonary oedema [Unknown]
  - Myocardial infarction [Unknown]
  - Anaemia [Unknown]
  - Influenza [Unknown]
  - Adjacent segment degeneration [Unknown]
  - Lumbar vertebral fracture [Unknown]
  - Back pain [Unknown]
  - Osteoporotic fracture [Unknown]
  - Compression fracture [Unknown]
